FAERS Safety Report 8124755-8 (Version None)
Quarter: 2012Q1

REPORT INFORMATION
  Report Type: 
  Country: None (occurrence: None)
  Receive Date: 20120209
  Receipt Date: 20120203
  Transmission Date: 20120608
  Serious: Yes (Other)
  Sender: FDA-Public Use
  Company Number: US-PFIZER INC-2011292222

PATIENT
  Sex: Male

DRUGS (1)
  1. CHANTIX [Suspect]
     Indication: SMOKING CESSATION THERAPY
     Dosage: UNK, 0.5MG AND 1 MG
     Dates: start: 20090101, end: 20090401

REACTIONS (10)
  - SUICIDAL BEHAVIOUR [None]
  - SUICIDAL IDEATION [None]
  - INSOMNIA [None]
  - DEPRESSION [None]
  - HOMICIDAL IDEATION [None]
  - LOSS OF CONSCIOUSNESS [None]
  - ANXIETY [None]
  - DIZZINESS [None]
  - MENTAL DISORDER [None]
  - AGGRESSION [None]
